FAERS Safety Report 21746612 (Version 1)
Quarter: 2022Q4

REPORT INFORMATION
  Report Type: Spontaneous
  Country: US (occurrence: None)
  Receive Date: 20221216
  Receipt Date: 20221216
  Transmission Date: 20230113
  Serious: No
  Sender: FDA-Public Use
  Company Number: None

PATIENT
  Age: 42 Year
  Sex: Female
  Weight: 50.35 kg

DRUGS (6)
  1. VERZENIO [Suspect]
     Active Substance: ABEMACICLIB
     Indication: Breast cancer female
     Dosage: FREQUENCY : TWICE A DAY;?
     Route: 048
  2. GABAPENTIN [Concomitant]
     Active Substance: GABAPENTIN
  3. MORPHINE SULFATE [Concomitant]
     Active Substance: MORPHINE SULFATE
  4. OXYCODONE [Concomitant]
     Active Substance: OXYCODONE
  5. ROBAXIN [Concomitant]
     Active Substance: METHOCARBAMOL
  6. ZOFRAN [Concomitant]
     Active Substance: ONDANSETRON HYDROCHLORIDE

REACTIONS (3)
  - Pancytopenia [None]
  - Sepsis [None]
  - Bone marrow disorder [None]
